FAERS Safety Report 6757951-2 (Version None)
Quarter: 2010Q2

REPORT INFORMATION
  Report Type: 
  Country: None (occurrence: None)
  Receive Date: 20100607
  Receipt Date: 20100528
  Transmission Date: 20101027
  Serious: Yes (Hospitalization, Other)
  Sender: FDA-Public Use
  Company Number: US-AMGEN-QUU415440

PATIENT
  Sex: Female

DRUGS (3)
  1. ENBREL [Suspect]
     Indication: RHEUMATOID ARTHRITIS
     Route: 058
     Dates: start: 20090601
  2. METHOTREXATE [Concomitant]
  3. LYRICA [Concomitant]

REACTIONS (8)
  - ABDOMINAL DISTENSION [None]
  - ABDOMINAL PAIN UPPER [None]
  - FIBROMYALGIA [None]
  - GASTROINTESTINAL INFLAMMATION [None]
  - HYPOTENSION [None]
  - INFREQUENT BOWEL MOVEMENTS [None]
  - LYME DISEASE [None]
  - PAIN [None]
